FAERS Safety Report 21359235 (Version 1)
Quarter: 2022Q3

REPORT INFORMATION
  Report Type: Report from Study
  Country: CA (occurrence: CA)
  Receive Date: 20220921
  Receipt Date: 20220921
  Transmission Date: 20221027
  Serious: Yes (Death)
  Sender: FDA-Public Use
  Company Number: CA-drreddys-SPO/CAN/22/0154516

PATIENT
  Age: 80 Year

DRUGS (1)
  1. AZACITIDINE [Suspect]
     Active Substance: AZACITIDINE
     Indication: Myelodysplastic syndrome
     Dosage: 75MG/M^2 FOR 7 DAYS EVERY 28 DAYS.
     Dates: start: 20220530

REACTIONS (1)
  - Death [Fatal]
